FAERS Safety Report 4380642-2 (Version None)
Quarter: 2004Q2

REPORT INFORMATION
  Report Type: 
  Country: None (occurrence: None)
  Receive Date: 20040618
  Receipt Date: 20040312
  Transmission Date: 20050107
  Serious: Yes (Other)
  Sender: FDA-Public Use
  Company Number: JP-ROCHE-361815

PATIENT
  Age: 87 Year
  Sex: Female
  Weight: 51.4 kg

DRUGS (6)
  1. TAMIFLU [Suspect]
     Route: 048
     Dates: start: 20040306, end: 20040310
  2. INDERAL [Concomitant]
     Indication: HYPERTENSION
     Route: 048
  3. DIAZEPAM [Concomitant]
     Indication: PSYCHOSOMATIC DISEASE
     Route: 048
  4. VITAMEDIN [Concomitant]
     Route: 048
  5. LONGES [Concomitant]
     Indication: HYPERTENSION
     Route: 048
  6. MEVALOTIN [Concomitant]
     Indication: HYPERLIPIDAEMIA
     Route: 048

REACTIONS (3)
  - DELIRIUM [None]
  - DRUG INTERACTION [None]
  - HALLUCINATION, VISUAL [None]
